FAERS Safety Report 17812979 (Version 3)
Quarter: 2021Q2

REPORT INFORMATION
  Report Type: Spontaneous
  Country: FI (occurrence: FI)
  Receive Date: 20200521
  Receipt Date: 20210609
  Transmission Date: 20210716
  Serious: Yes (Other)
  Sender: FDA-Public Use
  Company Number: FI-MYLANLABS-2020M1049904

PATIENT
  Age: 74 Year
  Sex: Female

DRUGS (23)
  1. PREDNISONE. [Interacting]
     Active Substance: PREDNISONE
     Indication: CHONDROCALCINOSIS PYROPHOSPHATE
     Dosage: UNK
     Route: 065
     Dates: start: 2005, end: 2014
  2. BUDESONIDE. [Suspect]
     Active Substance: BUDESONIDE
     Indication: ASTHMA
     Dosage: UNK
     Route: 055
     Dates: start: 2011, end: 201906
  3. FLUCONAZOLE. [Interacting]
     Active Substance: FLUCONAZOLE
     Indication: ORAL CANDIDIASIS
  4. PREDNISONE. [Interacting]
     Active Substance: PREDNISONE
     Indication: MEDICAL DEVICE SITE INFLAMMATION
     Dosage: 5 MILLIGRAM, QD
     Route: 048
     Dates: start: 2005, end: 2014
  5. HYDROCORTISONE. [Concomitant]
     Active Substance: HYDROCORTISONE
     Indication: CHONDROCALCINOSIS PYROPHOSPHATE
     Dosage: 10?15 MG/DAILY
     Dates: start: 2018
  6. HYDROCORTISONE. [Concomitant]
     Active Substance: HYDROCORTISONE
     Indication: RHEUMATOID ARTHRITIS
  7. FLUCONAZOLE. [Interacting]
     Active Substance: FLUCONAZOLE
     Indication: PROPHYLAXIS
     Dosage: 100 MILLIGRAM, QD
     Route: 065
     Dates: start: 2005
  8. BUDESONIDE W/FORMOTEROL [Interacting]
     Active Substance: BUDESONIDE\FORMOTEROL
     Dosage: UNK
     Dates: start: 201906
  9. PREDNISONE. [Interacting]
     Active Substance: PREDNISONE
     Indication: ARTHRITIS
  10. CANDESARTAN. [Concomitant]
     Active Substance: CANDESARTAN
     Dosage: UNK
  11. BUDESONIDE W/FORMOTEROL [Interacting]
     Active Substance: BUDESONIDE\FORMOTEROL
     Indication: ASTHMA
     Dosage: 1.2 MILLIGRAM, QD
     Route: 055
     Dates: start: 2011, end: 201906
  12. CANDESARTAN. [Concomitant]
     Active Substance: CANDESARTAN
     Indication: HYPERTENSION
     Dosage: 16 MILLIGRAM, QD
     Route: 065
  13. HYDROCORTISONE. [Concomitant]
     Active Substance: HYDROCORTISONE
     Indication: ADRENAL SUPPRESSION
  14. FLUCONAZOLE. [Interacting]
     Active Substance: FLUCONAZOLE
     Indication: CANDIDA INFECTION
     Dosage: 100 MILLIGRAM, QOD
     Route: 065
     Dates: start: 2005
  15. FLUCONAZOLE. [Interacting]
     Active Substance: FLUCONAZOLE
     Indication: ANTIFUNGAL PROPHYLAXIS
  16. PREDNISONE. [Interacting]
     Active Substance: PREDNISONE
     Indication: RHEUMATOID ARTHRITIS
     Dosage: 5 MILLIGRAM, QD
     Dates: start: 2017, end: 2018
  17. MONTELUKAST [Suspect]
     Active Substance: MONTELUKAST SODIUM
     Indication: ASTHMA
     Dosage: 10 MILLIGRAM, QD
     Route: 065
     Dates: start: 2011
  18. HYDROCHLOROTHIAZIDE. [Concomitant]
     Active Substance: HYDROCHLOROTHIAZIDE
     Dosage: UNK
  19. BUDESONIDE. [Interacting]
     Active Substance: BUDESONIDE
     Dosage: UNK
     Route: 055
     Dates: start: 201906
  20. VERAPAMIL [Interacting]
     Active Substance: VERAPAMIL HYDROCHLORIDE
     Indication: HYPERTENSION
     Dosage: 200 MILLIGRAM, BID
     Route: 048
     Dates: start: 2012, end: 2018
  21. PREDNISONE. [Interacting]
     Active Substance: PREDNISONE
     Indication: HIP ARTHROPLASTY
     Dosage: 25 MILLIGRAM, QD
     Route: 065
     Dates: start: 2017, end: 2017
  22. HYDROCHLOROTHIAZIDE. [Concomitant]
     Active Substance: HYDROCHLOROTHIAZIDE
     Indication: HYPERTENSION
     Dosage: 12.5 MILLIGRAM, QD
     Route: 065
  23. FORMOTEROL [Concomitant]
     Active Substance: FORMOTEROL
     Indication: ASTHMA
     Dosage: UNK

REACTIONS (9)
  - Rheumatoid arthritis [Unknown]
  - Bone density decreased [Not Recovered/Not Resolved]
  - Blood calcium increased [Unknown]
  - Cortisol decreased [Not Recovered/Not Resolved]
  - Adrenal insufficiency [Not Recovered/Not Resolved]
  - Inhibitory drug interaction [Unknown]
  - Drug interaction [Not Recovered/Not Resolved]
  - Osteoporosis [Not Recovered/Not Resolved]
  - Chondrocalcinosis pyrophosphate [Unknown]

NARRATIVE: CASE EVENT DATE: 2011
